FAERS Safety Report 14419197 (Version 2)
Quarter: 2018Q1

REPORT INFORMATION
  Report Type: Spontaneous
  Country: US (occurrence: US)
  Receive Date: 20180122
  Receipt Date: 20180124
  Transmission Date: 20180509
  Serious: Yes (Other)
  Sender: FDA-Public Use
  Company Number: US-PFIZER INC-2018026923

PATIENT
  Age: 66 Year
  Sex: Female

DRUGS (2)
  1. METHYLPREDNISOLONE SODIUM SUCCINATE. [Suspect]
     Active Substance: METHYLPREDNISOLONE SODIUM SUCCINATE
     Indication: VASCULITIS
     Dosage: UNK (HIGH-DOSE)
  2. PREDNISONE. [Concomitant]
     Active Substance: PREDNISONE
     Indication: RAYNAUD^S PHENOMENON
     Dosage: 15 MG, UNK

REACTIONS (3)
  - Oesophageal candidiasis [Recovered/Resolved]
  - Inappropriate antidiuretic hormone secretion [Recovered/Resolved]
  - Strongyloidiasis [Recovered/Resolved]
